FAERS Safety Report 23494584 (Version 1)
Quarter: 2024Q1

REPORT INFORMATION
  Report Type: Spontaneous
  Country: AU (occurrence: AU)
  Receive Date: 20240207
  Receipt Date: 20240207
  Transmission Date: 20240410
  Serious: Yes (Hospitalization)
  Sender: FDA-Public Use
  Company Number: AU-BAYER-2024A020143

PATIENT
  Age: 45 Year
  Sex: Female

DRUGS (1)
  1. PRIMOVIST [Suspect]
     Active Substance: GADOXETATE DISODIUM
     Indication: Magnetic resonance imaging abdominal
     Dosage: 7 ML, ONCE
     Route: 042

REACTIONS (3)
  - Pruritus [None]
  - Burning sensation [None]
  - Pharyngeal swelling [None]

NARRATIVE: CASE EVENT DATE: 20240202
